FAERS Safety Report 4602331-9 (Version None)
Quarter: 2005Q2

REPORT INFORMATION
  Report Type: 
  Country: None (occurrence: None)
  Receive Date: 20050215
  Receipt Date: 20041018
  Transmission Date: 20051028
  Serious: Yes (Other)
  Sender: FDA-Public Use
  Company Number: 376309

PATIENT
  Age: 39 Year
  Sex: Female
  Weight: 49.9 kg

DRUGS (2)
  1. PEGASYS (PEG-INTERFERON ALFA 2) 180 MCG [Suspect]
     Indication: HEPATITIS C
     Dosage: SUBCUTANEOUS
     Route: 058
     Dates: start: 20040220
  2. COPEGUS [Suspect]
     Dosage: 800 MG DAILY ORAL
     Route: 048
     Dates: start: 20040220

REACTIONS (6)
  - ALOPECIA [None]
  - DIFFERENTIAL WHITE BLOOD CELL COUNT ABNORMAL [None]
  - FATIGUE [None]
  - HAEMOGLOBIN ABNORMAL [None]
  - NEUTROPHIL COUNT DECREASED [None]
  - PHARYNGOLARYNGEAL PAIN [None]
